FAERS Safety Report 8170712-5 (Version None)
Quarter: 2012Q1

REPORT INFORMATION
  Report Type: 
  Country: None (occurrence: None)
  Receive Date: 20120228
  Receipt Date: 20120221
  Transmission Date: 20120608
  Serious: Yes (Death, Hospitalization)
  Sender: FDA-Public Use
  Company Number: US-ELI_LILLY_AND_COMPANY-US201202005988

PATIENT
  Sex: Male

DRUGS (2)
  1. ALIMTA [Suspect]
     Indication: NON-SMALL CELL LUNG CANCER
     Dosage: UNK
     Dates: start: 20110609, end: 20111208
  2. AVASTIN [Concomitant]
     Dosage: UNK
     Dates: start: 20110125, end: 20111208

REACTIONS (2)
  - RESPIRATORY ARREST [None]
  - HOSPITALISATION [None]
